FAERS Safety Report 10081952 (Version 1)
Quarter: 2014Q2

REPORT INFORMATION
  Report Type: Spontaneous
  Country: JP (occurrence: JP)
  Receive Date: 20140416
  Receipt Date: 20140416
  Transmission Date: 20141212
  Serious: Yes (Other)
  Sender: FDA-Public Use
  Company Number: JP-GLAXOSMITHKLINE-B0986041A

PATIENT
  Age: 12 Year
  Sex: Female

DRUGS (1)
  1. RELENZA [Suspect]
     Indication: INFLUENZA
     Route: 055
     Dates: start: 201402

REACTIONS (5)
  - Erythema multiforme [Unknown]
  - Pruritus [Unknown]
  - Impetigo [Unknown]
  - Leukoderma [Unknown]
  - Erythema [Unknown]
